FAERS Safety Report 12667362 (Version 1)
Quarter: 2016Q3

REPORT INFORMATION
  Report Type: Spontaneous
  Country: US (occurrence: US)
  Receive Date: 20160819
  Receipt Date: 20160819
  Transmission Date: 20161109
  Serious: No
  Sender: FDA-Public Use
  Company Number: US-PFIZER INC-2016368624

PATIENT
  Sex: Female

DRUGS (2)
  1. LEVOTHYROXINE SODIUM. [Suspect]
     Active Substance: LEVOTHYROXINE SODIUM
     Indication: AUTOIMMUNE THYROIDITIS
     Dosage: 112 UG, 1X/DAY(112 MCG, TABLET, ONCE A DAY RESPECTIVELY)
  2. SYNTHROID [Suspect]
     Active Substance: LEVOTHYROXINE SODIUM
     Indication: AUTOIMMUNE THYROIDITIS
     Dosage: 112 UG, 1X/DAY(112 MCG, TABLET, ONCE A DAY RESPECTIVELY)

REACTIONS (4)
  - Blister [Recovered/Resolved]
  - Oral mucosal blistering [Recovered/Resolved]
  - Lip blister [Recovered/Resolved]
  - Drug hypersensitivity [Unknown]
